FAERS Safety Report 6858577-2 (Version None)
Quarter: 2010Q3

REPORT INFORMATION
  Report Type: 
  Country: None (occurrence: None)
  Receive Date: 20100719
  Receipt Date: 20080225
  Transmission Date: 20110219
  Serious: Yes (Other)
  Sender: FDA-Public Use
  Company Number: US-PFIZER INC-2008013902

PATIENT
  Sex: Female
  Weight: 73 kg

DRUGS (4)
  1. CHANTIX [Suspect]
     Indication: SMOKING CESSATION THERAPY
     Route: 048
     Dates: start: 20080119, end: 20080127
  2. CLONAZEPAM [Concomitant]
  3. LEXAPRO [Concomitant]
  4. ANTIDEPRESSANTS [Concomitant]

REACTIONS (4)
  - DEPRESSED MOOD [None]
  - DEPRESSION [None]
  - FEELING ABNORMAL [None]
  - MALAISE [None]
